FAERS Safety Report 7015629-4 (Version None)
Quarter: 2010Q3

REPORT INFORMATION
  Report Type: 
  Country: None (occurrence: None)
  Receive Date: 20100927
  Receipt Date: 20100923
  Transmission Date: 20110219
  Serious: Yes (Hospitalization)
  Sender: FDA-Public Use
  Company Number: IT-BRISTOL-MYERS SQUIBB COMPANY-15281959

PATIENT
  Age: 75 Year
  Sex: Female

DRUGS (9)
  1. COUMADIN [Suspect]
     Indication: ATRIAL FIBRILLATION
     Dosage: INTERRUPTED 17APR10
     Dates: start: 20010821
  2. LANOXIN [Concomitant]
     Dosage: TABS
     Route: 048
  3. KANRENOL [Concomitant]
     Dosage: TABS
     Route: 048
  4. LANSOX [Concomitant]
     Dosage: CAPS
     Route: 048
  5. DILATREND [Concomitant]
     Dosage: TABS
     Route: 048
  6. ENAPREN [Concomitant]
     Dosage: TABS
     Route: 048
  7. LASIX [Concomitant]
     Dosage: TABS
     Route: 048
  8. HUMALOG [Concomitant]
     Dosage: INJECTABLE SOLUTION
     Route: 058
  9. LANTUS [Concomitant]
     Dosage: INJECTABLE SOLUTION
     Route: 058

REACTIONS (2)
  - CEREBRAL ISCHAEMIA [None]
  - HAEMORRHAGIC INFARCTION [None]
